FAERS Safety Report 19051075 (Version 1)
Quarter: 2021Q1

REPORT INFORMATION
  Report Type: Spontaneous
  Country: US (occurrence: US)
  Receive Date: 20210324
  Receipt Date: 20210324
  Transmission Date: 20210420
  Serious: Yes (Other)
  Sender: FDA-Public Use
  Company Number: US-ALLERGAN-2029597US

PATIENT
  Age: 82 Year
  Sex: Female
  Weight: 65.77 kg

DRUGS (1)
  1. MESALAZINE 1 GM SUP [Suspect]
     Active Substance: MESALAMINE
     Indication: GASTROINTESTINAL DISORDER
     Dosage: 1 DF, QHS
     Route: 054
     Dates: start: 2019

REACTIONS (3)
  - Product packaging difficult to open [Unknown]
  - Rectal haemorrhage [Not Recovered/Not Resolved]
  - Product physical issue [Unknown]

NARRATIVE: CASE EVENT DATE: 20200725
